FAERS Safety Report 6970716-1 (Version None)
Quarter: 2010Q3

REPORT INFORMATION
  Report Type: 
  Country: None (occurrence: None)
  Receive Date: 20100903
  Receipt Date: 20100823
  Transmission Date: 20110219
  Serious: No
  Sender: FDA-Public Use
  Company Number: 010633

PATIENT
  Age: 93 Year
  Sex: Female

DRUGS (5)
  1. PLETAL [Suspect]
     Indication: ARTERIOSCLEROSIS OBLITERANS
     Dosage: 50 MG, BID, ORAL
     Route: 048
     Dates: start: 20090406, end: 20090420
  2. DIOVAN [Concomitant]
  3. PRAVASTATIN [Concomitant]
  4. ALLOPURINOL [Concomitant]
  5. ARICEPT [Concomitant]

REACTIONS (1)
  - PERIPHERAL ISCHAEMIA [None]
